FAERS Safety Report 11105142 (Version 1)
Quarter: 2015Q2

REPORT INFORMATION
  Report Type: Spontaneous
  Country: US (occurrence: US)
  Receive Date: 20150511
  Receipt Date: 20150511
  Transmission Date: 20150821
  Serious: No
  Sender: FDA-Public Use
  Company Number: US-GLAXOSMITHKLINE-US2015062539

PATIENT
  Age: 54 Year
  Sex: Female

DRUGS (16)
  1. AMLODIPINE [Concomitant]
     Active Substance: AMLODIPINE BESYLATE
  2. ARAVA [Concomitant]
     Active Substance: LEFLUNOMIDE
  3. HYDROCODONE [Concomitant]
     Active Substance: HYDROCODONE
  4. PLAQUENIL [Concomitant]
     Active Substance: HYDROXYCHLOROQUINE SULFATE
  5. FOLIC ACID. [Concomitant]
     Active Substance: FOLIC ACID
  6. MAGNESIUM OXIDE. [Concomitant]
     Active Substance: MAGNESIUM OXIDE
  7. METHOTREXATE [Concomitant]
     Active Substance: METHOTREXATE
  8. PAXIL [Concomitant]
     Active Substance: PAROXETINE HYDROCHLORIDE
  9. BENLYSTA [Suspect]
     Active Substance: BELIMUMAB
     Indication: SYSTEMIC LUPUS ERYTHEMATOSUS
     Dosage: UNK, U
     Route: 042
     Dates: start: 20150507
  10. ASPIRIN. [Concomitant]
     Active Substance: ASPIRIN
  11. CARVEDILOL. [Concomitant]
     Active Substance: CARVEDILOL
  12. SIMVASTATIN. [Concomitant]
     Active Substance: SIMVASTATIN
  13. PRILOSEC [Concomitant]
     Active Substance: OMEPRAZOLE MAGNESIUM
  14. ENALAPRIL [Concomitant]
     Active Substance: ENALAPRIL
  15. EFFIENT [Concomitant]
     Active Substance: PRASUGREL HYDROCHLORIDE
  16. PREDNISONE. [Concomitant]
     Active Substance: PREDNISONE

REACTIONS (2)
  - Myalgia [Not Recovered/Not Resolved]
  - Fatigue [Not Recovered/Not Resolved]

NARRATIVE: CASE EVENT DATE: 20150507
